FAERS Safety Report 13795701 (Version 5)
Quarter: 2017Q4

REPORT INFORMATION
  Report Type: Report from Study
  Country: US (occurrence: US)
  Receive Date: 20170726
  Receipt Date: 20171114
  Transmission Date: 20180320
  Serious: Yes (Other)
  Sender: FDA-Public Use
  Company Number: US-ROCHE-1967772

PATIENT
  Age: 64 Year
  Sex: Male
  Weight: 81 kg

DRUGS (8)
  1. BEVACIZUMAB. [Suspect]
     Active Substance: BEVACIZUMAB
     Indication: COLORECTAL CANCER
     Dosage: ON 06/JUL/2017, 20/JUL/2017 AT 11.33 AND 14/SEP/2017, HE RECEIVED BEVACIZUMAB AT 10.55
     Route: 042
     Dates: start: 20170608
  2. EFFIENT [Concomitant]
     Active Substance: PRASUGREL HYDROCHLORIDE
     Route: 048
     Dates: start: 2015
  3. PROTONIX [Concomitant]
     Active Substance: PANTOPRAZOLE SODIUM
     Indication: GASTROOESOPHAGEAL REFLUX DISEASE
     Route: 048
     Dates: start: 20170512
  4. ATEZOLIZUMAB. [Suspect]
     Active Substance: ATEZOLIZUMAB
     Indication: COLORECTAL CANCER
     Dosage: DATE OF MOST RECENT DOSE OF ATEZOLIZUMAB ON 17/SEP/2017?ON 06/JUL/2017, 20/JUL/2017 (AT 09:58), 03/A
     Route: 042
     Dates: start: 20170608
  5. ATORVASTATIN [Concomitant]
     Active Substance: ATORVASTATIN
     Indication: HYPERLIPIDAEMIA
     Route: 048
     Dates: start: 2015
  6. METOCLOPRAMIDE. [Concomitant]
     Active Substance: METOCLOPRAMIDE
     Indication: GASTROOESOPHAGEAL REFLUX DISEASE
     Route: 048
     Dates: start: 2016
  7. TRIAMCINOLONE [Concomitant]
     Active Substance: TRIAMCINOLONE
     Indication: DERMATITIS ACNEIFORM
     Route: 061
     Dates: start: 20170831
  8. COBIMETINIB. [Suspect]
     Active Substance: COBIMETINIB
     Indication: COLORECTAL CANCER
     Dosage: ON 19/JUL/2017, 16/AUG/2017, 23/AUG/2017, 24/AUG/2017 (DOSE REDUCED) AND 20/SEP/2017, HE RECEIVED CO
     Route: 048
     Dates: start: 20170608

REACTIONS (1)
  - Blood creatine phosphokinase increased [Not Recovered/Not Resolved]

NARRATIVE: CASE EVENT DATE: 20170622
